FAERS Safety Report 23176248 (Version 4)
Quarter: 2023Q4

REPORT INFORMATION
  Report Type: Spontaneous
  Country: US (occurrence: US)
  Receive Date: 20231113
  Receipt Date: 20231205
  Transmission Date: 20240109
  Serious: Yes (Other)
  Sender: FDA-Public Use
  Company Number: US-ORGANON-O2311USA000996

PATIENT
  Sex: Female
  Weight: 62.585 kg

DRUGS (2)
  1. NEXPLANON [Suspect]
     Active Substance: ETONOGESTREL
     Indication: Contraception
     Dosage: 1 IMPLANT LEFT UPPER ARM (EVERY THREE YEARS)
     Route: 059
     Dates: start: 20230927, end: 20231108
  2. NEXPLANON [Suspect]
     Active Substance: ETONOGESTREL
     Indication: Contraception

REACTIONS (4)
  - Device expulsion [Recovered/Resolved]
  - Device dislocation [Recovering/Resolving]
  - Implant site erythema [Recovering/Resolving]
  - No adverse event [Unknown]

NARRATIVE: CASE EVENT DATE: 20230101
